FAERS Safety Report 12952693 (Version 2)
Quarter: 2018Q2

REPORT INFORMATION
  Report Type: Spontaneous
  Country: US (occurrence: US)
  Receive Date: 20161117
  Receipt Date: 20180515
  Transmission Date: 20180711
  Serious: No
  Sender: FDA-Public Use
  Company Number: US-SA-2016SA162721

PATIENT
  Sex: Female

DRUGS (2)
  1. TOUJEO [Suspect]
     Active Substance: INSULIN GLARGINE
     Indication: DIABETES MELLITUS
     Route: 065
     Dates: end: 201607
  2. SOLOSTAR [Concomitant]
     Active Substance: DEVICE
     Indication: DIABETES MELLITUS
     Route: 065
     Dates: end: 201607

REACTIONS (4)
  - Fatigue [Unknown]
  - Drug dose omission [Unknown]
  - Depressed mood [Unknown]
  - Emotional disorder [Unknown]

NARRATIVE: CASE EVENT DATE: 201607
